FAERS Safety Report 7219895-1 (Version None)
Quarter: 2011Q1

REPORT INFORMATION
  Report Type: 
  Country: None (occurrence: None)
  Receive Date: 20110111
  Receipt Date: 20110103
  Transmission Date: 20110831
  Serious: Yes (Other)
  Sender: FDA-Public Use
  Company Number: PHHO2010DE17886

PATIENT
  Sex: Male
  Weight: 69 kg

DRUGS (4)
  1. STI571/CGP57148B [Suspect]
     Indication: CHRONIC MYELOID LEUKAEMIA
     Dosage: 400 MG, UNK
     Route: 048
     Dates: start: 20050204
  2. ASS ^CT-ARZNEIMITTEL^ [Concomitant]
  3. INTERFERON ALFA [Suspect]
     Indication: CHRONIC MYELOID LEUKAEMIA
     Dosage: UNK
     Dates: start: 20050318, end: 20080311
  4. PANTOPRAZOLE [Concomitant]

REACTIONS (4)
  - TONGUE ATROPHY [None]
  - AMYOTROPHIC LATERAL SCLEROSIS [None]
  - MUSCLE SPASMS [None]
  - NEUROLOGICAL SYMPTOM [None]
